FAERS Safety Report 8230383-6 (Version None)
Quarter: 2012Q1

REPORT INFORMATION
  Report Type: 
  Country: None (occurrence: None)
  Receive Date: 20120320
  Receipt Date: 20120309
  Transmission Date: 20120608
  Serious: Yes (Other)
  Sender: FDA-Public Use
  Company Number: AUR-APL-2012-01409

PATIENT
  Age: 25 Year
  Sex: Male

DRUGS (3)
  1. SERTRALINE HYDROCHLORIDE [Suspect]
     Indication: PRODUCT USED FOR UNKNOWN INDICATION
     Dosage: 300 MG (300 MG, 1 IN 1 D)
  2. HYPERICUM (HYPERICUM PERFORATUM EXTRACT) [Suspect]
     Indication: ANXIETY
     Dosage: 900 MG (900 MG, 1 IN 1 D)
  3. ESCITALOPRAM OXALATE [Suspect]
     Indication: ANXIETY
     Dosage: 10 MG (10 MG, 1 IN 1 D)

REACTIONS (12)
  - PERSONALITY CHANGE [None]
  - SUBSTANCE USE [None]
  - AKATHISIA [None]
  - TOXICITY TO VARIOUS AGENTS [None]
  - MANIA [None]
  - EJACULATION FAILURE [None]
  - DEPRESSION [None]
  - AGITATION [None]
  - SUICIDE ATTEMPT [None]
  - PARANOIA [None]
  - AGGRESSION [None]
  - OVERDOSE [None]
